FAERS Safety Report 21813619 (Version 2)
Quarter: 2023Q1

REPORT INFORMATION
  Report Type: Report from Study
  Country: US (occurrence: US)
  Receive Date: 20230103
  Receipt Date: 20230316
  Transmission Date: 20230418
  Serious: No
  Sender: FDA-Public Use
  Company Number: US-ABBVIE-4229717

PATIENT
  Age: 83 Year
  Sex: Male
  Weight: 131.54 kg

DRUGS (1)
  1. HUMIRA [Suspect]
     Active Substance: ADALIMUMAB
     Indication: Rheumatoid arthritis
     Dosage: FORM STRENGTH 40 MILLIGRAM/MILLILITERS?CITRATE FREE
     Route: 058

REACTIONS (4)
  - Swelling [Unknown]
  - Paraesthesia [Unknown]
  - Finger deformity [Unknown]
  - Joint lock [Unknown]

NARRATIVE: CASE EVENT DATE: 20220801
